FAERS Safety Report 9646030 (Version 3)
Quarter: 2014Q4

REPORT INFORMATION
  Report Type: Spontaneous
  Country: US (occurrence: None)
  Receive Date: 20131023
  Receipt Date: 20141014
  Transmission Date: 20150529
  Serious: Yes (Hospitalization)
  Sender: FDA-Public Use
  Company Number: 2013-US-002105

PATIENT
  Age: 29 Year
  Sex: Male

DRUGS (3)
  1. XYREM [Suspect]
     Active Substance: SODIUM OXYBATE
     Indication: PARASOMNIA
     Route: 048
     Dates: start: 200710, end: 2007
  2. XYREM [Suspect]
     Active Substance: SODIUM OXYBATE
     Indication: NARCOLEPSY
     Route: 048
     Dates: start: 200710, end: 2007
  3. NUVIGIL [Suspect]
     Active Substance: ARMODAFINIL
     Indication: NARCOLEPSY

REACTIONS (18)
  - Dizziness [None]
  - Pain [None]
  - Chest pain [None]
  - Nausea [None]
  - Hypoaesthesia [None]
  - Anxiety [None]
  - Sleep apnoea syndrome [None]
  - Insomnia [None]
  - Fatigue [None]
  - Vomiting [None]
  - Abdominal pain upper [None]
  - Sleep terror [None]
  - Feeling abnormal [None]
  - Abnormal dreams [None]
  - Disturbance in attention [None]
  - Somnolence [None]
  - Abdominal discomfort [None]
  - Arrhythmia [None]

NARRATIVE: CASE EVENT DATE: 2007
